FAERS Safety Report 15043312 (Version 1)
Quarter: 2018Q2

REPORT INFORMATION
  Report Type: Report from Study
  Country: DE (occurrence: DE)
  Receive Date: 20180621
  Receipt Date: 20180621
  Transmission Date: 20180711
  Serious: Yes (Other)
  Sender: FDA-Public Use
  Company Number: DE-TEVA-2018-DE-909001

PATIENT
  Age: 63 Year
  Sex: Female
  Weight: 68 kg

DRUGS (10)
  1. 5-FLUOROURACIL [Suspect]
     Active Substance: FLUOROURACIL
     Dosage: 1651.2 - 2076 MG
     Route: 041
     Dates: start: 20130102, end: 20130410
  2. CAPECITABINE. [Suspect]
     Active Substance: CAPECITABINE
     Indication: COLORECTAL CANCER METASTATIC
     Dosage: DOSE: 1650-2150 MG
     Route: 065
     Dates: start: 20130423, end: 20130618
  3. CAPECITABINE. [Suspect]
     Active Substance: CAPECITABINE
     Dosage: 2150 MG
     Route: 065
     Dates: start: 20130515
  4. 5-FLUOROURACIL [Suspect]
     Active Substance: FLUOROURACIL
     Indication: COLORECTAL CANCER METASTATIC
     Dosage: 550.4-692 MG
     Route: 040
     Dates: start: 20130102, end: 20130410
  5. PANTOPRAZOL [Concomitant]
     Active Substance: PANTOPRAZOLE SODIUM
     Indication: GASTRITIS
     Dosage: 80 MILLIGRAM DAILY;
     Route: 048
     Dates: start: 20130513, end: 20140627
  6. OXALIPLATIN. [Suspect]
     Active Substance: OXALIPLATIN
     Indication: COLORECTAL CANCER METASTATIC
     Dosage: 116.96 - 147.05 MG
     Route: 042
     Dates: start: 20130102, end: 20130409
  7. BEVACIZUMAB. [Suspect]
     Active Substance: BEVACIZUMAB
     Indication: COLORECTAL CANCER METASTATIC
     Route: 042
     Dates: start: 20130102, end: 20131106
  8. DIPYRONE [Concomitant]
     Active Substance: DIPYRONE
     Indication: PAIN
     Route: 048
     Dates: start: 20130513, end: 20140627
  9. FOLINIC ACID [Suspect]
     Active Substance: LEUCOVORIN
     Indication: COLORECTAL CANCER METASTATIC
     Dosage: 275.2-346 MG
     Route: 042
     Dates: start: 20130102, end: 20130410
  10. BEVACIZUMAB. [Suspect]
     Active Substance: BEVACIZUMAB
     Route: 042
     Dates: start: 20130522

REACTIONS (6)
  - Thrombocytopenia [Recovered/Resolved]
  - Leukopenia [Recovered/Resolved]
  - Nausea [Recovered/Resolved]
  - Anaemia [Recovered/Resolved]
  - Palmar-plantar erythrodysaesthesia syndrome [Recovered/Resolved]
  - Neuropathy peripheral [Recovered/Resolved]

NARRATIVE: CASE EVENT DATE: 20130325
